FAERS Safety Report 7214234-4 (Version None)
Quarter: 2011Q1

REPORT INFORMATION
  Report Type: 
  Country: None (occurrence: None)
  Receive Date: 20110107
  Receipt Date: 20110104
  Transmission Date: 20110831
  Serious: Yes (Death, Hospitalization)
  Sender: FDA-Public Use
  Company Number: BE-BAYER-201034569GPV

PATIENT
  Sex: Male
  Weight: 84 kg

DRUGS (15)
  1. PLACEBO (12917) [Suspect]
     Indication: HEPATIC NEOPLASM MALIGNANT
     Dosage: 150 MG (DAILY DOSE), QD, ORAL
     Route: 048
     Dates: start: 20100720, end: 20100729
  2. GLURENORM [Concomitant]
     Indication: DIABETES MELLITUS
     Dosage: 30 MG (DAILY DOSE), QD, ORAL
     Route: 048
     Dates: start: 20040101
  3. SORAFENIB (RAF KINASE INHIBITOR) [Suspect]
     Route: 048
     Dates: start: 20100802, end: 20100805
  4. MOTILIUM [Concomitant]
     Indication: ABDOMINAL PAIN
     Dosage: 10 MG (DAILY DOSE), QD, ORAL
     Route: 048
     Dates: start: 20100727
  5. ZESTORETIC [Concomitant]
     Indication: HYPERTENSION
     Dosage: AS USED DOSE: 20/12.5 MG
     Route: 048
     Dates: start: 20100201
  6. PLAVIX [Concomitant]
     Indication: CORONARY ANGIOPLASTY
  7. HALCION [Concomitant]
     Indication: INSOMNIA
     Dosage: 0.25 MG (DAILY DOSE), QD, ORAL
     Route: 048
     Dates: start: 20060401, end: 20100729
  8. RANITIDINE [Concomitant]
     Indication: OESOPHAGITIS
     Dosage: 150 MG (DAILY DOSE), QD, ORAL
     Route: 048
     Dates: start: 20040101
  9. GAVISCON [Concomitant]
     Indication: ABDOMINAL PAIN
     Dosage: 250MG/5ML
     Route: 048
     Dates: start: 20100727
  10. TAMSULOSIN [Concomitant]
     Indication: BENIGN PROSTATIC HYPERPLASIA
     Dosage: 0.4 MG (DAILY DOSE), QD, ORAL
     Route: 048
     Dates: start: 20050101
  11. PROVERA [Concomitant]
     Indication: DECREASED APPETITE
     Dosage: 500 NOT APPLICABLE (DAILY DOSE), , ORAL
     Route: 048
     Dates: start: 20100727, end: 20100729
  12. PLAVIX [Concomitant]
     Indication: STENT PLACEMENT
     Dosage: 75 MG (DAILY DOSE), QD, ORAL
     Route: 048
     Dates: start: 20040101
  13. KREDEX [Concomitant]
     Indication: HYPERTENSION
     Dosage: 25 MG (DAILY DOSE), QD, ORAL
     Route: 048
     Dates: start: 20040101
  14. SORAFENIB (RAF KINASE INHIBITOR) [Suspect]
     Indication: HEPATIC NEOPLASM MALIGNANT
     Dosage: 400 MG, QD
     Route: 048
     Dates: start: 20100720, end: 20100729
  15. PLACEBO (12917) [Suspect]
     Dosage: DRUG RESTARTED AT REDUCED DOSE
     Route: 048
     Dates: start: 20100802, end: 20100805

REACTIONS (5)
  - TACHYCARDIA [None]
  - AGITATION [None]
  - CONFUSIONAL STATE [None]
  - DEATH [None]
  - DECREASED APPETITE [None]
